FAERS Safety Report 14433233 (Version 1)
Quarter: 2018Q1

REPORT INFORMATION
  Report Type: Spontaneous
  Country: US (occurrence: US)
  Receive Date: 20180124
  Receipt Date: 20180124
  Transmission Date: 20180509
  Serious: Yes (Hospitalization)
  Sender: FDA-Public Use
  Company Number: US-PIRAMAL ENTERPRISES LTD-T201304784

PATIENT

DRUGS (1)
  1. GABLOFEN [Suspect]
     Active Substance: BACLOFEN
     Indication: MUSCLE SPASTICITY
     Dosage: 137.38 MCG PER DAY
     Route: 037

REACTIONS (6)
  - Hypotonia [Unknown]
  - Condition aggravated [Recovered/Resolved]
  - Device breakage [Recovered/Resolved]
  - Withdrawal syndrome [Recovered/Resolved]
  - Pruritus [Recovered/Resolved]
  - Device dislocation [None]

NARRATIVE: CASE EVENT DATE: 2012
